FAERS Safety Report 13124764 (Version 1)
Quarter: 2017Q1

REPORT INFORMATION
  Report Type: Spontaneous
  Country: FR (occurrence: FR)
  Receive Date: 20170118
  Receipt Date: 20170118
  Transmission Date: 20170428
  Serious: Yes (Hospitalization)
  Sender: FDA-Public Use
  Company Number: FR-BRISTOL-MYERS SQUIBB COMPANY-BMS-2017-003405

PATIENT
  Age: 64 Year
  Sex: Male
  Weight: 57 kg

DRUGS (1)
  1. NIVOLUMAB [Suspect]
     Active Substance: NIVOLUMAB
     Indication: NON-SMALL CELL LUNG CANCER RECURRENT
     Route: 065

REACTIONS (2)
  - Sensory loss [Unknown]
  - Diplopia [Unknown]

NARRATIVE: CASE EVENT DATE: 20161229
